FAERS Safety Report 5535278-4 (Version None)
Quarter: 2007Q4

REPORT INFORMATION
  Report Type: 
  Country: None (occurrence: None)
  Receive Date: 20071204
  Receipt Date: 20071204
  Transmission Date: 20080405
  Serious: Yes (Other)
  Sender: FDA-Public Use
  Company Number: None

PATIENT
  Age: 63 Year
  Sex: Female
  Weight: 18.1439 kg

DRUGS (1)
  1. CARBOPLATIN 450MG TEVA [Suspect]
     Indication: BREAST CANCER
     Dosage: 340MG EVERY 3 WEEKS IV
     Route: 042
     Dates: start: 20071012, end: 20071130

REACTIONS (5)
  - DIZZINESS [None]
  - DYSPNOEA [None]
  - HYPOTENSION [None]
  - URINARY INCONTINENCE [None]
  - VOMITING [None]
